FAERS Safety Report 6819297-3 (Version None)
Quarter: 2010Q3

REPORT INFORMATION
  Report Type: 
  Country: None (occurrence: None)
  Receive Date: 20100707
  Receipt Date: 20100630
  Transmission Date: 20110219
  Serious: Yes (Death, Hospitalization, Other)
  Sender: FDA-Public Use
  Company Number: FR-CELGENEUS-056-50794-10061136

PATIENT
  Sex: Male

DRUGS (4)
  1. VIDAZA [Suspect]
     Indication: ACUTE MYELOID LEUKAEMIA
     Route: 065
     Dates: start: 20080923
  2. GLUCOR [Concomitant]
     Indication: HYPERGLYCAEMIA
     Route: 065
  3. GLIMEPIRIDE [Concomitant]
     Indication: HYPERGLYCAEMIA
     Route: 065
  4. STAGID [Concomitant]
     Indication: HYPERGLYCAEMIA
     Route: 065

REACTIONS (5)
  - FEBRILE BONE MARROW APLASIA [None]
  - HAEMORRHAGE [None]
  - HYPOGLYCAEMIA [None]
  - LUNG INFECTION [None]
  - SARCOMA [None]
